FAERS Safety Report 7502092-X (Version None)
Quarter: 2011Q2

REPORT INFORMATION
  Report Type: 
  Country: None (occurrence: None)
  Receive Date: 20110525
  Receipt Date: 20110406
  Transmission Date: 20111010
  Serious: No
  Sender: FDA-Public Use
  Company Number: A0921647A

PATIENT
  Age: 65 Year
  Sex: Male

DRUGS (5)
  1. THEOPHYLLINE [Concomitant]
  2. POTASSIUM CHLORIDE [Concomitant]
  3. VENTOLIN [Suspect]
     Indication: ASTHMA
     Dosage: 2PUFF AS REQUIRED
     Route: 055
     Dates: start: 20101001
  4. LASIX [Concomitant]
  5. ALBUTEROL [Concomitant]

REACTIONS (2)
  - PRODUCT QUALITY ISSUE [None]
  - DYSPNOEA [None]
